FAERS Safety Report 7369236-4 (Version None)
Quarter: 2011Q1

REPORT INFORMATION
  Report Type: 
  Country: None (occurrence: None)
  Receive Date: 20110323
  Receipt Date: 20110311
  Transmission Date: 20110831
  Serious: Yes (Hospitalization)
  Sender: FDA-Public Use
  Company Number: JP-JNJFOC-20110308431

PATIENT
  Age: 80 Year
  Sex: Male
  Weight: 40 kg

DRUGS (1)
  1. CRAVIT [Suspect]
     Indication: URINARY TRACT INFECTION
     Route: 048

REACTIONS (4)
  - PYREXIA [None]
  - OVERDOSE [None]
  - RENAL FAILURE ACUTE [None]
  - HAEMATURIA [None]
